FAERS Safety Report 9940540 (Version 1)
Quarter: 2014Q1

REPORT INFORMATION
  Report Type: Spontaneous
  Country: FI (occurrence: FI)
  Receive Date: 20140303
  Receipt Date: 20140303
  Transmission Date: 20141002
  Serious: Yes (Death)
  Sender: FDA-Public Use
  Company Number: FI-MYLANLABS-2014S1003871

PATIENT
  Age: 70 Year
  Sex: Male

DRUGS (5)
  1. OXAZEPAM [Suspect]
     Indication: POISONING DELIBERATE
     Route: 065
  2. TEMAZEPAM [Suspect]
     Indication: POISONING DELIBERATE
     Route: 065
  3. TEMAZEPAM [Suspect]
     Indication: OFF LABEL USE
     Route: 065
  4. DIAZEPAM [Concomitant]
     Indication: EPILEPSY
     Dosage: AS NEEDED
     Route: 042
  5. TRIMETHOPRIM [Concomitant]
     Route: 065

REACTIONS (4)
  - Toxicity to various agents [Fatal]
  - Dementia Alzheimer^s type [Fatal]
  - Loss of consciousness [Not Recovered/Not Resolved]
  - Dyspnoea [Not Recovered/Not Resolved]
